FAERS Safety Report 22286252 (Version 3)
Quarter: 2023Q2

REPORT INFORMATION
  Report Type: Report from Study
  Country: CO (occurrence: CO)
  Receive Date: 20230505
  Receipt Date: 20230519
  Transmission Date: 20230721
  Serious: Yes (Death, Life-Threatening, Hospitalization)
  Sender: FDA-Public Use
  Company Number: CO-ABBVIE-4751430

PATIENT
  Age: 64 Year
  Sex: Female

DRUGS (1)
  1. VENCLEXTA [Suspect]
     Active Substance: VENETOCLAX
     Indication: Acute myeloid leukaemia
     Dosage: 200 MILLIGRAM?FORM STRENGTH: 100 MILLIGRAM?IT IS NOT AT HAND
     Route: 048
     Dates: start: 20230414, end: 20230428

REACTIONS (5)
  - Death [Fatal]
  - Platelet count decreased [Recovering/Resolving]
  - Critical illness [Recovering/Resolving]
  - Lung disorder [Recovering/Resolving]
  - Haemoglobin decreased [Recovering/Resolving]

NARRATIVE: CASE EVENT DATE: 20230429
